APPROVED DRUG PRODUCT: LUPRON DEPOT-PED KIT
Active Ingredient: LEUPROLIDE ACETATE
Strength: 45MG
Dosage Form/Route: POWDER;INTRAMUSCULAR
Application: N020263 | Product #009
Applicant: ABBVIE ENDOCRINE INC
Approved: Apr 14, 2023 | RLD: Yes | RS: Yes | Type: RX

PATENTS:
Patent 9617303 | Expires: Mar 22, 2028
Patent 8921326 | Expires: Feb 5, 2031

EXCLUSIVITY:
Code: NS | Date: Apr 14, 2026